FAERS Safety Report 10646881 (Version 5)
Quarter: 2016Q4

REPORT INFORMATION
  Report Type: Spontaneous
  Country: US (occurrence: US)
  Receive Date: 20141211
  Receipt Date: 20161012
  Transmission Date: 20170206
  Serious: Yes (Hospitalization, Other)
  Sender: FDA-Public Use
  Company Number: US-009507513-1412USA005034

PATIENT
  Sex: Female
  Weight: 72.56 kg

DRUGS (3)
  1. ALENDRONATE SODIUM. [Suspect]
     Active Substance: ALENDRONATE SODIUM
     Indication: OSTEOPOROSIS
     Dosage: 70 MG, QW
     Route: 048
     Dates: start: 20090415, end: 20101108
  2. CALCIUM (UNSPECIFIED) (+) VITAMIN D (UNSPECIFIED) [Concomitant]
     Active Substance: CALCIUM CARBONATE\VITAMIN D
     Indication: ROUTINE HEALTH MAINTENANCE
     Dosage: 630MG/ 1000 IU
     Route: 048
     Dates: start: 1995
  3. FOSAMAX [Suspect]
     Active Substance: ALENDRONATE SODIUM
     Indication: OSTEOPOROSIS
     Dosage: 70 MG, QW
     Route: 048
     Dates: start: 200201, end: 20090415

REACTIONS (11)
  - Denture wearer [Unknown]
  - Pain in extremity [Unknown]
  - Blood cholesterol increased [Unknown]
  - Femur fracture [Recovered/Resolved]
  - Osteoarthritis [Unknown]
  - Device failure [Unknown]
  - Limb injury [Unknown]
  - Road traffic accident [Unknown]
  - Femur fracture [Recovered/Resolved]
  - Fracture delayed union [Recovered/Resolved]
  - Diabetes mellitus [Unknown]

NARRATIVE: CASE EVENT DATE: 2005
